FAERS Safety Report 8810791 (Version 1)
Quarter: 2012Q4

REPORT INFORMATION
  Report Type: Spontaneous
  Country: US (occurrence: None)
  Receive Date: 20120924
  Receipt Date: 20120924
  Transmission Date: 20130627
  Serious: Yes (Disabling, Other)
  Sender: FDA-Public Use
  Company Number: None

PATIENT
  Age: 73 Year
  Sex: Female
  Weight: 90.72 kg

DRUGS (2)
  1. PRAMIPEXOLE [Suspect]
     Indication: RESTLESS LEG SYNDROME
     Dates: start: 20010818, end: 20120918
  2. PRAMIPEXOLE [Suspect]
     Dates: start: 20010818, end: 20120918

REACTIONS (1)
  - Gambling [None]
